FAERS Safety Report 6498255-5 (Version None)
Quarter: 2009Q4

REPORT INFORMATION
  Report Type: 
  Country: None (occurrence: None)
  Receive Date: 20091215
  Receipt Date: 20091208
  Transmission Date: 20100525
  Serious: Yes (Hospitalization)
  Sender: FDA-Public Use
  Company Number: B0601754A

PATIENT
  Sex: Female

DRUGS (11)
  1. VALTREX [Suspect]
     Indication: HERPES ZOSTER
     Dosage: 1000MG THREE TIMES PER DAY
     Route: 048
     Dates: start: 20091030, end: 20091101
  2. LOXONIN [Suspect]
     Indication: PAIN
     Dosage: 60MG TWICE PER DAY
     Route: 048
     Dates: start: 20091001, end: 20091101
  3. METHYCOBAL [Concomitant]
     Indication: PAIN
     Dosage: 1500MCG PER DAY
     Route: 048
     Dates: start: 20091030
  4. ASPIRIN [Concomitant]
     Indication: ANGINA PECTORIS
     Dosage: 100MG PER DAY
     Route: 048
     Dates: end: 20091102
  5. ACTOS [Concomitant]
     Indication: DIABETES MELLITUS
     Dosage: 30MG PER DAY
     Route: 048
     Dates: end: 20091101
  6. OMEPRAL [Concomitant]
     Indication: DUODENAL ULCER
     Dosage: 10MG PER DAY
     Route: 048
  7. CRESTOR [Concomitant]
     Dosage: 2.5MG PER DAY
     Route: 048
     Dates: end: 20091101
  8. CARDENALIN [Concomitant]
     Indication: HYPERTENSION
     Dosage: 2MG PER DAY
     Route: 048
  9. PANALDINE [Concomitant]
     Indication: ANGINA PECTORIS
     Dosage: 200MG PER DAY
     Route: 048
  10. DIOVAN [Concomitant]
     Route: 048
     Dates: end: 20091101
  11. MAGMITT [Concomitant]
     Indication: CONSTIPATION
     Dosage: 660MG PER DAY
     Route: 048

REACTIONS (5)
  - DECREASED APPETITE [None]
  - ENCEPHALOPATHY [None]
  - NAUSEA [None]
  - RENAL FAILURE ACUTE [None]
  - VOMITING [None]
